FAERS Safety Report 9818337 (Version 1)
Quarter: 2014Q1

REPORT INFORMATION
  Report Type: Spontaneous
  Country: US (occurrence: US)
  Receive Date: 20140115
  Receipt Date: 20140115
  Transmission Date: 20141002
  Serious: No
  Sender: FDA-Public Use
  Company Number: US-PFIZER INC-2014010640

PATIENT
  Sex: 0

DRUGS (3)
  1. CHANTIX [Suspect]
     Indication: SMOKING CESSATION THERAPY
     Dosage: 1 WHITE PILL, UNK
  2. CHANTIX [Suspect]
     Dosage: 2 WHITE PILLS, DAILY
  3. CHANTIX [Suspect]
     Dosage: BLUE PILLS, UNK

REACTIONS (1)
  - Weight increased [Recovered/Resolved]
